FAERS Safety Report 21082984 (Version 2)
Quarter: 2022Q4

REPORT INFORMATION
  Report Type: Report from Study
  Country: US (occurrence: US)
  Receive Date: 20220714
  Receipt Date: 20221008
  Transmission Date: 20230113
  Serious: No
  Sender: FDA-Public Use
  Company Number: US-NOVARTISTESTPH-NVSC2022US159712

PATIENT
  Sex: Female

DRUGS (1)
  1. COSENTYX [Suspect]
     Active Substance: SECUKINUMAB
     Indication: Psoriatic arthropathy
     Dosage: 1 DOSAGE FORM, QW  (ONCE A WEEK FOR 5 WEEKS AND THEN Q4 WEEKS)
     Route: 058
     Dates: start: 202203

REACTIONS (2)
  - Joint stiffness [Recovering/Resolving]
  - Therapeutic product effect incomplete [Unknown]
